FAERS Safety Report 13489608 (Version 6)
Quarter: 2018Q2

REPORT INFORMATION
  Report Type: Report from Study
  Country: US (occurrence: US)
  Receive Date: 20170427
  Receipt Date: 20180419
  Transmission Date: 20180711
  Serious: Yes (Other)
  Sender: FDA-Public Use
  Company Number: US-SA-2017SA071582

PATIENT
  Age: 59 Year
  Sex: Female
  Weight: 94.8 kg

DRUGS (12)
  1. BUPROPION HYDROCHLORIDE. [Concomitant]
     Active Substance: BUPROPION HYDROCHLORIDE
     Route: 065
  2. BUPROPION HYDROCHLORIDE. [Concomitant]
     Active Substance: BUPROPION HYDROCHLORIDE
     Route: 065
  3. ZOLOFT [Concomitant]
     Active Substance: SERTRALINE HYDROCHLORIDE
     Route: 065
  4. NYSTATIN. [Concomitant]
     Active Substance: NYSTATIN
     Dosage: 100000UNITS/G-DAY, 15 G; APPLY 2-3 TIMES A DAY
     Route: 061
  5. VALTREX [Concomitant]
     Active Substance: VALACYCLOVIR HYDROCHLORIDE
     Route: 065
  6. PREVACID [Concomitant]
     Active Substance: LANSOPRAZOLE
     Route: 048
  7. NASACORT AQ [Concomitant]
     Active Substance: TRIAMCINOLONE ACETONIDE
     Dosage: 2SPRAYS DIALY
  8. NASACORT AQ [Concomitant]
     Active Substance: TRIAMCINOLONE ACETONIDE
     Route: 065
  9. VALIUM [Concomitant]
     Active Substance: DIAZEPAM
  10. LEMTRADA [Suspect]
     Active Substance: ALEMTUZUMAB
     Indication: MULTIPLE SCLEROSIS
     Route: 041
     Dates: start: 20170306, end: 20170310
  11. LEMTRADA [Suspect]
     Active Substance: ALEMTUZUMAB
     Indication: MULTIPLE SCLEROSIS
     Route: 041
     Dates: start: 20180312, end: 20180314
  12. HYDROCHLOROTHIAZIDE/TRIAMTERENE [Concomitant]
     Dosage: 75-50 MG 1/2 TAB DAILY
     Route: 065

REACTIONS (20)
  - Impaired work ability [Recovered/Resolved]
  - Skin exfoliation [Unknown]
  - Melanocytic naevus [Unknown]
  - Haemangioma [Unknown]
  - Benign neoplasm of skin [Unknown]
  - Lipoma [Unknown]
  - Gingival discomfort [Not Recovered/Not Resolved]
  - Erythema [Unknown]
  - Tooth infection [Recovered/Resolved]
  - Dental care [Recovered/Resolved]
  - Oral surgery [Recovered/Resolved]
  - Tooth abscess [Not Recovered/Not Resolved]
  - Skin lesion [Unknown]
  - Autoimmune disorder [Unknown]
  - Toothache [Not Recovered/Not Resolved]
  - Feeling abnormal [Unknown]
  - Hyperthyroidism [Recovering/Resolving]
  - Clostridium difficile infection [Recovered/Resolved]
  - Skin discolouration [Unknown]
  - Nodule [Unknown]

NARRATIVE: CASE EVENT DATE: 2017
